FAERS Safety Report 11417095 (Version 1)
Quarter: 2015Q3

REPORT INFORMATION
  Report Type: Spontaneous
  Country: US (occurrence: US)
  Receive Date: 20150825
  Receipt Date: 20150825
  Transmission Date: 20151125
  Serious: Yes (Other)
  Sender: FDA-Public Use
  Company Number: US-TEVA-588523USA

PATIENT
  Sex: Female

DRUGS (1)
  1. CLARAVIS [Suspect]
     Active Substance: ISOTRETINOIN
     Route: 048
     Dates: start: 20150530, end: 20150615

REACTIONS (6)
  - Chapped lips [Unknown]
  - Swelling face [Unknown]
  - Lip swelling [Unknown]
  - Lip dry [Unknown]
  - Stomatitis [Unknown]
  - Oral pain [Unknown]
